FAERS Safety Report 7324786-1 (Version None)
Quarter: 2011Q1

REPORT INFORMATION
  Report Type: 
  Country: None (occurrence: None)
  Receive Date: 20110301
  Receipt Date: 20110223
  Transmission Date: 20110831
  Serious: Yes (Other)
  Sender: FDA-Public Use
  Company Number: US-PFIZER INC-2011040291

PATIENT
  Sex: Male

DRUGS (3)
  1. ROBITUSSIN COUGH AND COLD CF [Suspect]
     Indication: COUGH
     Dosage: UNK
     Route: 048
     Dates: start: 20110222, end: 20110201
  2. ROBITUSSIN COUGH AND COLD CF [Suspect]
     Indication: PULMONARY CONGESTION
  3. ACETAMINOPHEN [Concomitant]
     Indication: HEADACHE
     Dosage: UNK

REACTIONS (3)
  - ASTHMA [None]
  - OBSTRUCTIVE AIRWAYS DISORDER [None]
  - COUGH [None]
